FAERS Safety Report 24037536 (Version 1)
Quarter: 2024Q3

REPORT INFORMATION
  Report Type: Spontaneous
  Country: CN (occurrence: CN)
  Receive Date: 20240702
  Receipt Date: 20240702
  Transmission Date: 20241017
  Serious: Yes (Disabling, Other)
  Sender: TAKEDA
  Company Number: CN-HUTCHMED LIMITED-HMP2024CN01462

PATIENT
  Age: 65 Year
  Sex: Male
  Weight: 65 kg

DRUGS (5)
  1. FRUQUINTINIB [Suspect]
     Active Substance: FRUQUINTINIB
     Indication: Colorectal cancer
     Dosage: UNK
     Route: 065
  2. FRUQUINTINIB [Suspect]
     Active Substance: FRUQUINTINIB
     Dosage: 3 MILLIGRAM, QD
     Route: 048
     Dates: start: 20240524, end: 20240614
  3. SINTILIMAB [Concomitant]
     Active Substance: SINTILIMAB
     Indication: Colorectal cancer
     Dosage: 200 MILLIGRAM
     Route: 041
     Dates: start: 20240521, end: 20240521
  4. TIPIRACIL HYDROCHLORIDE\TRIFLURIDINE [Concomitant]
     Active Substance: TIPIRACIL HYDROCHLORIDE\TRIFLURIDINE
     Indication: Colorectal cancer
     Dosage: UNK
     Route: 065
  5. TIPIRACIL HYDROCHLORIDE\TRIFLURIDINE [Concomitant]
     Active Substance: TIPIRACIL HYDROCHLORIDE\TRIFLURIDINE
     Dosage: 40 MILLIGRAM, BID
     Route: 048
     Dates: start: 20240524, end: 20240607

REACTIONS (2)
  - Myelosuppression [Recovering/Resolving]
  - Platelet count decreased [Unknown]

NARRATIVE: CASE EVENT DATE: 20240614
